FAERS Safety Report 4642292-X (Version None)
Quarter: 2005Q2

REPORT INFORMATION
  Report Type: 
  Country: None (occurrence: None)
  Receive Date: 20050421
  Receipt Date: 20050421
  Transmission Date: 20051028
  Serious: No
  Sender: FDA-Public Use
  Company Number: None

PATIENT
  Sex: Male
  Weight: 80 kg

DRUGS (3)
  1. TEMOZOLOMIDE [Suspect]
     Indication: GLIOBLASTOMA MULTIFORME
     Dosage: 150 MG/M2 PO, QHS ON DAYS 1-5, EVERY 28 DAYS
     Route: 048
     Dates: start: 20030908
  2. IRINOTECAN HCL [Suspect]
     Dosage: 200 MG/M2 IV OVER 90 MINUTES ON DAYS 1 AND 14, EVERY 28 DAYS
     Route: 042
  3. DEXAMETHASONE [Concomitant]

REACTIONS (5)
  - HEADACHE [None]
  - LYMPHOPENIA [None]
  - PNEUMOCYSTIS JIROVECI INFECTION [None]
  - PNEUMONITIS [None]
  - RESPIRATORY DISTRESS [None]
